FAERS Safety Report 4909908-1 (Version None)
Quarter: 2006Q1

REPORT INFORMATION
  Report Type: 
  Country: None (occurrence: None)
  Receive Date: 20060208
  Receipt Date: 20060127
  Transmission Date: 20060701
  Serious: Yes (Life-Threatening)
  Sender: FDA-Public Use
  Company Number: 2006015722

PATIENT
  Age: 41 Year
  Sex: Male

DRUGS (6)
  1. SOLU-MEDROL [Suspect]
     Indication: BACK PAIN
     Dosage: INTRAVENOUS
     Route: 042
     Dates: start: 20050713
  2. TRAMADOL HCL [Suspect]
     Indication: BACK PAIN
     Dosage: INTRAVENOUS
     Route: 042
     Dates: start: 20050713
  3. MYOLASTAN (TETRAZEPAM) [Suspect]
     Indication: BACK PAIN
     Dosage: ORAL
     Route: 048
     Dates: start: 20050713
  4. DAFLON (DIOSMIN) [Concomitant]
  5. TRANXENE [Concomitant]
  6. OMEPRAZOLE [Concomitant]

REACTIONS (3)
  - ANGIONEUROTIC OEDEMA [None]
  - DYSPHAGIA [None]
  - DYSPHONIA [None]
